FAERS Safety Report 5331270-3 (Version None)
Quarter: 2007Q2

REPORT INFORMATION
  Report Type: 
  Country: None (occurrence: None)
  Receive Date: 20070301
  Receipt Date: 20060216
  Transmission Date: 20071010
  Serious: Yes (Other)
  Sender: FDA-Public Use
  Company Number: 2041

PATIENT
  Age: 41 Year
  Sex: Female

DRUGS (1)
  1. AMNESTEEM [Suspect]
     Indication: ACNE
     Dosage: 40 MG, QD, PO
     Route: 048
     Dates: start: 20050416, end: 20051201

REACTIONS (6)
  - ANAL DISCOMFORT [None]
  - CHAPPED LIPS [None]
  - EXCORIATION [None]
  - GENITAL PAIN [None]
  - SWELLING [None]
  - VITAMIN D DECREASED [None]
